FAERS Safety Report 4276412-6 (Version None)
Quarter: 2004Q1

REPORT INFORMATION
  Report Type: 
  Country: None (occurrence: None)
  Receive Date: 20040121
  Receipt Date: 20031124
  Transmission Date: 20041129
  Serious: Yes (Other)
  Sender: FDA-Public Use
  Company Number: PHEH2003US10825

PATIENT
  Age: 51 Year
  Sex: Female

DRUGS (5)
  1. ZELNORM [Suspect]
     Indication: IRRITABLE BOWEL SYNDROME
     Dosage: 6 MG, BID
     Route: 048
     Dates: start: 20031029
  2. ZELNORM [Suspect]
     Dosage: 6 MG, BID
     Dates: start: 20031101, end: 20031123
  3. SYNTHROID [Concomitant]
     Indication: HYPOTHYROIDISM
  4. LIPITOR [Concomitant]
     Indication: HYPERCHOLESTEROLAEMIA
  5. ZOLOFT [Concomitant]
     Indication: DEPRESSION
     Dosage: 100 MG, QD

REACTIONS (10)
  - ABDOMINAL PAIN [None]
  - ASTHENIA [None]
  - CONSTIPATION [None]
  - DECREASED APPETITE [None]
  - DEPRESSION [None]
  - DIARRHOEA HAEMORRHAGIC [None]
  - PSYCHOTIC DISORDER [None]
  - SUICIDAL IDEATION [None]
  - UTERINE NEOPLASM [None]
  - WEIGHT DECREASED [None]
